FAERS Safety Report 11102835 (Version 1)
Quarter: 2015Q2

REPORT INFORMATION
  Report Type: Spontaneous
  Country: CA (occurrence: CA)
  Receive Date: 20150511
  Receipt Date: 20150511
  Transmission Date: 20150821
  Serious: Yes (Hospitalization)
  Sender: FDA-Public Use
  Company Number: CA-APOTEX-2015AP008982

PATIENT
  Age: 64 Year
  Sex: Male

DRUGS (2)
  1. ARTHROTEC [Concomitant]
     Active Substance: DICLOFENAC SODIUM\MISOPROSTOL
     Indication: ARTHRALGIA
     Dosage: 50MG 2-3 TIMES DAILY
     Route: 065
  2. APO-DONEPEZIL (DONEPEZIL) TABLET [Suspect]
     Active Substance: DONEPEZIL
     Indication: DEMENTIA ALZHEIMER^S TYPE
     Route: 065

REACTIONS (12)
  - Affect lability [None]
  - Irritability [None]
  - Flight of ideas [None]
  - Elevated mood [None]
  - Wrong patient received medication [Recovering/Resolving]
  - Self-medication [None]
  - Aggression [None]
  - Insomnia [None]
  - Psychomotor hyperactivity [None]
  - Mania [Recovering/Resolving]
  - Agitation [None]
  - Pressure of speech [None]
